FAERS Safety Report 7520875-7 (Version None)
Quarter: 2011Q2

REPORT INFORMATION
  Report Type: 
  Country: None (occurrence: None)
  Receive Date: 20110603
  Receipt Date: 20101118
  Transmission Date: 20111010
  Serious: Yes (Death)
  Sender: FDA-Public Use
  Company Number: JP-BAYER-201013054BYL

PATIENT
  Age: 77 Year
  Sex: Female

DRUGS (5)
  1. LONGES [Concomitant]
     Indication: HYPERTENSION
     Dosage: 10 MG (DAILY DOSE), , ORAL
     Route: 048
     Dates: start: 20091218, end: 20100512
  2. AMLODIPINE [Concomitant]
     Indication: HYPERTENSION
     Dosage: 5 MG (DAILY DOSE), , ORAL
     Route: 048
     Dates: start: 20091218, end: 20100512
  3. LIVACT [Concomitant]
     Indication: HYPOALBUMINAEMIA
     Dosage: 3 DF (DAILY DOSE), , ORAL
     Route: 048
     Dates: start: 20091221, end: 20100512
  4. NEXAVAR [Suspect]
     Indication: HEPATIC NEOPLASM MALIGNANT
     Dosage: DAILY DOSE 400 MG
     Route: 048
     Dates: start: 20091214, end: 20100510
  5. URSO 250 [Concomitant]
     Indication: HEPATIC FUNCTION ABNORMAL
     Dosage: 600 MG (DAILY DOSE), , ORAL
     Route: 048
     Dates: start: 20100208, end: 20100512

REACTIONS (3)
  - DEHYDRATION [None]
  - SUDDEN DEATH [None]
  - VOMITING [None]
